FAERS Safety Report 20947320 (Version 3)
Quarter: 2022Q3

REPORT INFORMATION
  Report Type: Report from Study
  Country: US (occurrence: US)
  Receive Date: 20220610
  Receipt Date: 20220719
  Transmission Date: 20221026
  Serious: Yes (Hospitalization)
  Sender: FDA-Public Use
  Company Number: US-JAZZ-2022-US-018803

PATIENT
  Age: 62 Year
  Sex: Male
  Weight: 57 kg

DRUGS (3)
  1. LURBINECTEDIN [Suspect]
     Active Substance: LURBINECTEDIN
     Indication: Small cell lung cancer
     Dosage: UNK
     Dates: start: 20210304, end: 20210908
  2. NIVOLUMAB [Suspect]
     Active Substance: NIVOLUMAB
     Dosage: UNK
     Dates: start: 20210304, end: 20210908
  3. IPILIMUMAB [Suspect]
     Active Substance: IPILIMUMAB
     Dosage: UNK
     Dates: start: 20210304, end: 20210503

REACTIONS (2)
  - Small intestinal obstruction [Recovered/Resolved]
  - Cerebral ischaemia [Unknown]

NARRATIVE: CASE EVENT DATE: 20210925
